FAERS Safety Report 8354023 (Version 2)
Quarter: 2013Q1

REPORT INFORMATION
  Report Type: Spontaneous
  Country: AU (occurrence: AU)
  Receive Date: 20120125
  Receipt Date: 20130307
  Transmission Date: 20140127
  Serious: Yes (Hospitalization, Other)
  Sender: FDA-Public Use
  Company Number: AU-UCBSA-049684

PATIENT
  Sex: Male

DRUGS (12)
  1. VIMPAT [Suspect]
     Indication: COMPLEX PARTIAL SEIZURES
     Route: 048
     Dates: start: 201201, end: 20120114
  2. VIMPAT [Interacting]
     Indication: CONVULSION
     Route: 048
     Dates: start: 201201, end: 20120114
  3. VIMPAT [Interacting]
     Indication: COMPLEX PARTIAL SEIZURES
     Route: 048
  4. VIMPAT [Interacting]
     Indication: CONVULSION
     Route: 048
  5. VIMPAT [Interacting]
     Indication: COMPLEX PARTIAL SEIZURES
     Route: 048
     Dates: start: 20111115, end: 20120114
  6. VIMPAT [Interacting]
     Indication: CONVULSION
     Route: 048
     Dates: start: 20111115, end: 20120114
  7. CITALOPRAM [Interacting]
     Indication: DEPRESSION
     Dosage: STOPPED 1 WEEK BEFORE 2ND HOSPITALIZATION, DOSE: 50 MG DAILY
     Route: 048
     Dates: end: 20120114
  8. UNSPECIFIED INGREDIENT [Interacting]
     Indication: DEPRESSION
     Dosage: UNKNOWN DOSE
     Route: 048
     Dates: end: 20120114
  9. CLONAZEPAM [Concomitant]
     Indication: COMPLEX PARTIAL SEIZURES
     Route: 048
  10. EPILIM [Concomitant]
     Indication: COMPLEX PARTIAL SEIZURES
  11. LAMOTRIGINE [Concomitant]
     Indication: COMPLEX PARTIAL SEIZURES
  12. TOPAMAX [Concomitant]
     Indication: COMPLEX PARTIAL SEIZURES

REACTIONS (4)
  - Suicide attempt [Recovered/Resolved]
  - Pathological gambling [Recovered/Resolved]
  - Intentional overdose [Recovered/Resolved]
  - Drug interaction [Recovered/Resolved]
